FAERS Safety Report 12337775 (Version 1)
Quarter: 2016Q2

REPORT INFORMATION
  Report Type: Spontaneous
  Country: US (occurrence: None)
  Receive Date: 20160504
  Receipt Date: 20160504
  Transmission Date: 20160815
  Serious: No
  Sender: FDA-Public Use
  Company Number: None

PATIENT
  Age: 54 Year
  Sex: Female

DRUGS (1)
  1. IBRANCE [Suspect]
     Active Substance: PALBOCICLIB
     Dosage: 125MG FOR 3 DAILY ORAL
     Route: 048

REACTIONS (2)
  - Alopecia [None]
  - Dizziness [None]

NARRATIVE: CASE EVENT DATE: 20160503
